FAERS Safety Report 9951871 (Version 2)
Quarter: 2014Q1

REPORT INFORMATION
  Report Type: Spontaneous
  Country: PR (occurrence: PR)
  Receive Date: 20140304
  Receipt Date: 20140304
  Transmission Date: 20141002
  Serious: No
  Sender: FDA-Public Use
  Company Number: PR-ABBVIE-13P-131-1049483-00

PATIENT
  Age: 71 Year
  Sex: Female

DRUGS (10)
  1. HUMIRA [Suspect]
     Indication: RHEUMATOID ARTHRITIS
     Route: 058
  2. HUMIRA [Suspect]
     Route: 058
     Dates: start: 20120717, end: 20120918
  3. PREDNISONE [Concomitant]
     Indication: RHEUMATOID ARTHRITIS
     Dosage: 5 MG DAILY
     Route: 048
  4. METHOTREXATE [Concomitant]
     Indication: RHEUMATOID ARTHRITIS
     Dosage: 6 TABLETS WEEKLY
     Route: 048
  5. ULTRACET [Concomitant]
     Indication: RHEUMATOID ARTHRITIS
     Route: 048
  6. SULINDAC [Concomitant]
     Indication: RHEUMATOID ARTHRITIS
     Dosage: 200 MG DAILY
     Route: 048
  7. SYNTHYROID [Concomitant]
     Indication: THYROID DISORDER
     Dosage: 50 MCG DAILY
     Route: 048
  8. ATENOLOL [Concomitant]
     Indication: HYPERTENSION
     Route: 048
  9. ZESTRIL [Concomitant]
     Indication: HYPERTENSION
     Route: 048
  10. NORVASC [Concomitant]
     Indication: HYPERTENSION
     Dosage: 10 MG DAILY
     Route: 048

REACTIONS (2)
  - Nasopharyngitis [Recovered/Resolved]
  - Cellulitis [Not Recovered/Not Resolved]
